FAERS Safety Report 5645370-1 (Version None)
Quarter: 2008Q1

REPORT INFORMATION
  Report Type: 
  Country: None (occurrence: None)
  Receive Date: 20080229
  Receipt Date: 20080224
  Transmission Date: 20080703
  Serious: Yes (Other)
  Sender: FDA-Public Use
  Company Number: JP-MERCK-0802USA04328

PATIENT
  Age: 64 Year
  Sex: Male

DRUGS (4)
  1. SINGULAIR [Suspect]
     Route: 048
     Dates: start: 20060201, end: 20061001
  2. [THERAPY UNSPECIFIED] [Concomitant]
     Route: 065
  3. CLARITHROMYCIN [Suspect]
     Route: 048
  4. [THERAPY UNSPECIFIED] [Concomitant]
     Route: 065

REACTIONS (1)
  - DRUG ERUPTION [None]
